FAERS Safety Report 4595889-X (Version None)
Quarter: 2005Q1

REPORT INFORMATION
  Report Type: 
  Country: None (occurrence: None)
  Receive Date: 20050224
  Receipt Date: 20050207
  Transmission Date: 20050727
  Serious: Yes (Other)
  Sender: FDA-Public Use
  Company Number: GBS041015760

PATIENT
  Age: 12 Year
  Sex: Male

DRUGS (3)
  1. STRATTERA [Suspect]
     Indication: ATTENTION DEFICIT/HYPERACTIVITY DISORDER
     Dosage: 18 MG
     Dates: start: 20040920, end: 20041008
  2. STRATTERA [Suspect]
     Indication: PSYCHOMOTOR HYPERACTIVITY
     Dosage: 18 MG
     Dates: start: 20040920, end: 20041008
  3. CONCERTA [Concomitant]

REACTIONS (4)
  - COMPULSIONS [None]
  - OBSESSIVE THOUGHTS [None]
  - PARANOIA [None]
  - SUICIDAL IDEATION [None]
